FAERS Safety Report 13632857 (Version 1)
Quarter: 2017Q2

REPORT INFORMATION
  Report Type: Spontaneous
  Country: US (occurrence: US)
  Receive Date: 20170531
  Receipt Date: 20170531
  Transmission Date: 20170830
  Serious: No
  Sender: FDA-Public Use
  Company Number: US-ASTELLAS-1485109

PATIENT
  Sex: Male
  Weight: 59.93 kg

DRUGS (9)
  1. AVIDART [Concomitant]
     Active Substance: DUTASTERIDE
  2. GARLIC PILLS [Concomitant]
  3. ATORVASTATIN [Concomitant]
     Active Substance: ATORVASTATIN
  4. GINSENG [Concomitant]
     Active Substance: ASIAN GINSENG
     Route: 065
  5. FUROSEMIDE. [Concomitant]
     Active Substance: FUROSEMIDE
  6. TARCEVA [Suspect]
     Active Substance: ERLOTINIB HYDROCHLORIDE
     Indication: NON-SMALL CELL LUNG CANCER
     Route: 065
     Dates: start: 201406
  7. LOSARTAN. [Concomitant]
     Active Substance: LOSARTAN
  8. AMIODARONE [Concomitant]
     Active Substance: AMIODARONE
  9. B12 COMPLEX [Concomitant]

REACTIONS (3)
  - Weight decreased [Recovering/Resolving]
  - Diarrhoea [Recovering/Resolving]
  - Muscle spasms [Not Recovered/Not Resolved]
